FAERS Safety Report 8601268-8 (Version None)
Quarter: 2012Q3

REPORT INFORMATION
  Report Type: 
  Country: None (occurrence: None)
  Receive Date: 20120817
  Receipt Date: 20120813
  Transmission Date: 20120928
  Serious: Yes (Other)
  Sender: FDA-Public Use
  Company Number: PHEH2012US008019

PATIENT
  Sex: Male

DRUGS (2)
  1. GLEEVEC [Suspect]
     Dosage: 400 MG, DAILY
     Route: 048
  2. GLEEVEC [Suspect]
     Indication: CHRONIC MYELOID LEUKAEMIA
     Dosage: 400 MG, QD
     Route: 048
     Dates: start: 20120319

REACTIONS (7)
  - ABDOMINAL DISCOMFORT [None]
  - NAUSEA [None]
  - BRAIN NEOPLASM [None]
  - CONVULSION [None]
  - VOMITING [None]
  - GASTROINTESTINAL DISORDER [None]
  - FREQUENT BOWEL MOVEMENTS [None]
